FAERS Safety Report 24407377 (Version 1)
Quarter: 2024Q4

REPORT INFORMATION
  Report Type: Spontaneous
  Country: US (occurrence: US)
  Receive Date: 20241007
  Receipt Date: 20241007
  Transmission Date: 20250115
  Serious: No
  Sender: PFIZER
  Company Number: US-PFIZER INC-PV202400128932

PATIENT
  Age: 80 Year
  Sex: Female

DRUGS (1)
  1. ZIRABEV [Suspect]
     Active Substance: BEVACIZUMAB-BVZR
     Indication: Product used for unknown indication
     Dosage: UNK

REACTIONS (4)
  - Neck mass [Unknown]
  - Adrenal mass [Unknown]
  - Neoplasm progression [Unknown]
  - Drug ineffective [Unknown]
